FAERS Safety Report 4750433-9 (Version None)
Quarter: 2005Q3

REPORT INFORMATION
  Report Type: 
  Country: None (occurrence: None)
  Receive Date: 20050823
  Receipt Date: 20050426
  Transmission Date: 20060218
  Serious: Yes (Death, Life-Threatening, Hospitalization)
  Sender: FDA-Public Use
  Company Number: 2005AP02476

PATIENT
  Age: 26597 Day
  Sex: Male

DRUGS (3)
  1. CASODEX [Suspect]
     Indication: PROSTATE CANCER
     Route: 048
     Dates: start: 20021201
  2. LEUPLIN [Suspect]
     Indication: PROSTATE CANCER
     Route: 058
     Dates: start: 20030128
  3. HONVAN [Concomitant]
     Indication: PROSTATE CANCER
     Route: 042
     Dates: start: 20030106, end: 20030115

REACTIONS (2)
  - PNEUMONITIS [None]
  - PNEUMOTHORAX [None]
